FAERS Safety Report 6086191-8 (Version None)
Quarter: 2009Q1

REPORT INFORMATION
  Report Type: 
  Country: None (occurrence: None)
  Receive Date: 20090220
  Receipt Date: 20090212
  Transmission Date: 20090719
  Serious: Yes (Hospitalization)
  Sender: FDA-Public Use
  Company Number: US-WYE-H08180409

PATIENT

DRUGS (1)
  1. TORISEL [Suspect]
     Indication: MALIGNANT MELANOMA
     Dosage: ONE DOSE

REACTIONS (1)
  - CEREBRAL HAEMORRHAGE [None]
